FAERS Safety Report 8478165-4 (Version None)
Quarter: 2012Q2

REPORT INFORMATION
  Report Type: 
  Country: None (occurrence: None)
  Receive Date: 20120629
  Receipt Date: 20120626
  Transmission Date: 20120825
  Serious: Yes (Other)
  Sender: FDA-Public Use
  Company Number: PHEH2012US006149

PATIENT
  Sex: Female
  Weight: 84.807 kg

DRUGS (3)
  1. GILENYA [Suspect]
     Indication: MULTIPLE SCLEROSIS
     Dosage: 0.5 MG, QD
     Route: 048
     Dates: start: 20120314
  2. ALLEGRA-D 12 HOUR [Suspect]
     Indication: HYPERSENSITIVITY
     Dates: start: 20120325
  3. TRAMADOL HCL [Concomitant]
     Indication: PAIN
     Route: 048

REACTIONS (11)
  - PALPITATIONS [None]
  - DYSURIA [None]
  - MICTURITION DISORDER [None]
  - BACK PAIN [None]
  - URINE ODOUR ABNORMAL [None]
  - ASTHENIA [None]
  - VERTIGO [None]
  - FATIGUE [None]
  - ANXIETY [None]
  - HEADACHE [None]
  - DIZZINESS [None]
